FAERS Safety Report 15934860 (Version 9)
Quarter: 2019Q2

REPORT INFORMATION
  Report Type: Spontaneous
  Country: US (occurrence: US)
  Receive Date: 20190207
  Receipt Date: 20190627
  Transmission Date: 20190711
  Serious: Yes (Hospitalization)
  Sender: FDA-Public Use
  Company Number: US-ACTELION-A-US2019-185593

PATIENT
  Age: 80 Year
  Sex: Female
  Weight: 79.82 kg

DRUGS (7)
  1. ADEMPAS [Suspect]
     Active Substance: RIOCIGUAT
     Indication: PRODUCT USED FOR UNKNOWN INDICATION
     Route: 065
  2. ADEMPAS [Suspect]
     Active Substance: RIOCIGUAT
     Dosage: 1 MG, TID
     Route: 065
     Dates: start: 20190203
  3. ADEMPAS [Suspect]
     Active Substance: RIOCIGUAT
     Dosage: 0.5 MG, QD
     Route: 048
  4. ELIQUIS [Concomitant]
     Active Substance: APIXABAN
  5. ADEMPAS [Suspect]
     Active Substance: RIOCIGUAT
     Dosage: 1 MG, QD
     Route: 048
  6. OPSUMIT [Suspect]
     Active Substance: MACITENTAN
     Indication: PULMONARY ARTERIAL HYPERTENSION
     Dosage: 10 MG, QD
     Route: 048
  7. AMLODIPINE [Concomitant]
     Active Substance: AMLODIPINE BESYLATE

REACTIONS (22)
  - Blood sodium decreased [Unknown]
  - Chest discomfort [Unknown]
  - Headache [Recovered/Resolved]
  - Vomiting [Unknown]
  - Food poisoning [Unknown]
  - Swelling [Recovering/Resolving]
  - Eructation [Unknown]
  - Anxiety [Unknown]
  - Insomnia [Unknown]
  - Nasopharyngitis [Unknown]
  - Nausea [Recovered/Resolved]
  - Diarrhoea [Unknown]
  - Cardioversion [Unknown]
  - Cough [Unknown]
  - Secretion discharge [Unknown]
  - Atrial fibrillation [Unknown]
  - Upper respiratory tract infection [Unknown]
  - Fatigue [Recovered/Resolved]
  - Bacterial infection [Unknown]
  - Crying [Unknown]
  - Dyspnoea [Not Recovered/Not Resolved]
  - Decreased appetite [Unknown]

NARRATIVE: CASE EVENT DATE: 20190203
